FAERS Safety Report 5047617-1 (Version None)
Quarter: 2006Q3

REPORT INFORMATION
  Report Type: 
  Country: None (occurrence: None)
  Receive Date: 20060703
  Receipt Date: 20060703
  Transmission Date: 20061208
  Serious: Yes (Other)
  Sender: FDA-Public Use
  Company Number: 2006-502

PATIENT
  Age: 19 Month
  Sex: Male

DRUGS (1)
  1. HIBICLENS [Suspect]
     Indication: ANTI-INFECTIVE THERAPY
     Dosage: TOPICAL ANTISEPTIC
     Route: 061

REACTIONS (1)
  - URTICARIA [None]
